FAERS Safety Report 6444372-5 (Version None)
Quarter: 2009Q4

REPORT INFORMATION
  Report Type: 
  Country: None (occurrence: None)
  Receive Date: 20091118
  Receipt Date: 20091111
  Transmission Date: 20100525
  Serious: Yes (Other)
  Sender: FDA-Public Use
  Company Number: GB-BRISTOL-MYERS SQUIBB COMPANY-14856223

PATIENT

DRUGS (1)
  1. ENTECAVIR [Suspect]
     Dosage: 0.5MG ON ALTERNATE DAYS

REACTIONS (2)
  - RENAL TRANSPLANT [None]
  - TRANSPLANT REJECTION [None]
